FAERS Safety Report 20953558 (Version 1)
Quarter: 2022Q2

REPORT INFORMATION
  Report Type: Other
  Country: US (occurrence: None)
  Receive Date: 20220613
  Receipt Date: 20220613
  Transmission Date: 20220721
  Serious: No
  Sender: FDA-Public Use
  Company Number: US-ROCHE-3115699

PATIENT
  Sex: Male

DRUGS (1)
  1. OCREVUS [Suspect]
     Active Substance: OCRELIZUMAB
     Indication: Relapsing multiple sclerosis
     Dosage: ONGOING-YES: INFUSE 300 MG DAY 1 REPEAT ON DAY 15
     Route: 065

REACTIONS (2)
  - Influenza [Recovering/Resolving]
  - Gait inability [Not Recovered/Not Resolved]
